FAERS Safety Report 14711064 (Version 3)
Quarter: 2018Q2

REPORT INFORMATION
  Report Type: Spontaneous
  Country: IT (occurrence: IT)
  Receive Date: 20180403
  Receipt Date: 20180630
  Transmission Date: 20180711
  Serious: Yes (Other)
  Sender: FDA-Public Use
  Company Number: IT-TEVA-2018-IT-874993

PATIENT
  Age: 16 Year
  Sex: Female

DRUGS (2)
  1. RAMIPRIL. [Suspect]
     Active Substance: RAMIPRIL
     Indication: INTENTIONAL SELF-INJURY
     Route: 048
     Dates: start: 20161006
  2. ATENOLOL. [Suspect]
     Active Substance: ATENOLOL
     Indication: INTENTIONAL SELF-INJURY
     Route: 048
     Dates: start: 20161006

REACTIONS (2)
  - Abdominal pain upper [Recovering/Resolving]
  - Intentional self-injury [Recovering/Resolving]

NARRATIVE: CASE EVENT DATE: 20161006
